FAERS Safety Report 9277217 (Version 1)
Quarter: 2013Q2

REPORT INFORMATION
  Report Type: Report from Study
  Country: CO (occurrence: CO)
  Receive Date: 20130508
  Receipt Date: 20130508
  Transmission Date: 20140414
  Serious: Yes (Other)
  Sender: FDA-Public Use
  Company Number: CO-ROCHE-1221843

PATIENT
  Age: 54 Year
  Sex: Male
  Weight: 35.05 kg

DRUGS (2)
  1. LUCENTIS [Suspect]
     Indication: PRODUCT USED FOR UNKNOWN INDICATION
     Route: 050
  2. FLUMETHOLON [Concomitant]

REACTIONS (1)
  - Eye haemorrhage [Unknown]
